FAERS Safety Report 15250962 (Version 1)
Quarter: 2018Q3

REPORT INFORMATION
  Report Type: Spontaneous
  Country: US (occurrence: US)
  Receive Date: 20180807
  Receipt Date: 20180807
  Transmission Date: 20181010
  Serious: Yes (Hospitalization)
  Sender: FDA-Public Use
  Company Number: US-UPSHER-SMITH LABORATORIES, LLC-2018USL00354

PATIENT
  Age: 57 Year
  Sex: Female

DRUGS (6)
  1. TRAZODONE [Concomitant]
     Active Substance: TRAZODONE HYDROCHLORIDE
     Indication: DEPRESSION
     Route: 065
  2. DULOXETINE. [Concomitant]
     Active Substance: DULOXETINE
     Indication: DEPRESSION
     Route: 065
  3. AMANTADINE HYDROCHLORIDE. [Suspect]
     Active Substance: AMANTADINE HYDROCHLORIDE
     Dosage: 1000 MG, 1X/DAY
     Route: 065
  4. PROTRYPTILINE [Concomitant]
     Indication: DEPRESSION
     Route: 065
  5. DONEPEZIL. [Concomitant]
     Active Substance: DONEPEZIL
     Indication: DEPRESSION
     Route: 065
  6. AMANTADINE HYDROCHLORIDE. [Suspect]
     Active Substance: AMANTADINE HYDROCHLORIDE
     Indication: DEPRESSION
     Dosage: 400 MG, 1X/DAY
     Route: 065

REACTIONS (3)
  - Toxicity to various agents [Recovering/Resolving]
  - Encephalopathy [Recovering/Resolving]
  - Respiratory failure [Recovering/Resolving]
